FAERS Safety Report 12331195 (Version 1)
Quarter: 2016Q2

REPORT INFORMATION
  Report Type: Spontaneous
  Country: PT (occurrence: PT)
  Receive Date: 20160504
  Receipt Date: 20160504
  Transmission Date: 20160815
  Serious: Yes (Death, Other)
  Sender: FDA-Public Use
  Company Number: PT-CELGENEUS-PRT-2015112738

PATIENT

DRUGS (2)
  1. REVLIMID [Suspect]
     Active Substance: LENALIDOMIDE
     Indication: PLASMA CELL MYELOMA
     Route: 048
  2. DEXAMETHASONE. [Concomitant]
     Active Substance: DEXAMETHASONE
     Indication: PLASMA CELL MYELOMA
     Route: 065

REACTIONS (12)
  - Metabolic disorder [Unknown]
  - Haematotoxicity [Unknown]
  - Neurotoxicity [Unknown]
  - Psychiatric symptom [Unknown]
  - Plasma cell myeloma [Fatal]
  - Nephropathy toxic [Unknown]
  - Thrombosis [Unknown]
  - Bone marrow failure [Unknown]
  - Gastrointestinal toxicity [Unknown]
  - Skin toxicity [Unknown]
  - Fatigue [Unknown]
  - Toxicity to various agents [Unknown]
